FAERS Safety Report 21715249 (Version 1)
Quarter: 2022Q4

REPORT INFORMATION
  Report Type: Spontaneous
  Country: US (occurrence: None)
  Receive Date: 20221211
  Receipt Date: 20221211
  Transmission Date: 20230113
  Serious: Yes (Other)
  Sender: FDA-Public Use
  Company Number: None

PATIENT
  Age: 64 Year
  Sex: Female
  Weight: 79.38 kg

DRUGS (6)
  1. HYDROXYCHLOROQUINE [Suspect]
     Active Substance: HYDROXYCHLOROQUINE
  2. FUROSEMIDE [Suspect]
     Active Substance: FUROSEMIDE
  3. BUSPAR [Suspect]
     Active Substance: BUSPIRONE HYDROCHLORIDE
  4. ESCITALOPRAM [Suspect]
     Active Substance: ESCITALOPRAM OXALATE
  5. PRAVASTATIN [Suspect]
     Active Substance: PRAVASTATIN
  6. ZETIA [Suspect]
     Active Substance: EZETIMIBE

REACTIONS (5)
  - Product label issue [None]
  - Product label issue [None]
  - Physical product label issue [None]
  - Product complaint [None]
  - Circumstance or information capable of leading to medication error [None]

NARRATIVE: CASE EVENT DATE: 20221209
